FAERS Safety Report 13055057 (Version 1)
Quarter: 2016Q4

REPORT INFORMATION
  Report Type: Spontaneous
  Country: JP (occurrence: JP)
  Receive Date: 20161222
  Receipt Date: 20161222
  Transmission Date: 20170207
  Serious: Yes (Other)
  Sender: FDA-Public Use
  Company Number: JP-PFIZER INC-2016501970

PATIENT
  Age: 3 Year
  Sex: Male
  Weight: 14 kg

DRUGS (10)
  1. PITRESSIN [Suspect]
     Active Substance: VASOPRESSIN
     Indication: CEREBRAL HYPOPERFUSION
     Dosage: 0.007 - 0.75 IU/HR
     Route: 041
     Dates: start: 20140412, end: 20140417
  2. PREDNISOLONE. [Suspect]
     Active Substance: PREDNISOLONE
     Indication: AUTOIMMUNE HAEMOLYTIC ANAEMIA
     Dosage: 9 MG, DAILY
     Route: 048
  3. GLYCERIN /00200601/ [Concomitant]
     Active Substance: GLYCERIN
     Dosage: UNK
     Dates: start: 20140404, end: 20140422
  4. PITRESSIN [Suspect]
     Active Substance: VASOPRESSIN
     Indication: ENCEPHALOPATHY
  5. METHYLPREDNISOLONE. [Concomitant]
     Active Substance: METHYLPREDNISOLONE
     Dosage: UNK
  6. MANNITOL. [Concomitant]
     Active Substance: MANNITOL
     Dosage: UNK
     Dates: start: 20140403, end: 20150416
  7. PERAMIVIR [Concomitant]
     Active Substance: PERAMIVIR
     Dosage: UNK
     Dates: start: 2014, end: 2014
  8. SOLU-MEDROL [Suspect]
     Active Substance: METHYLPREDNISOLONE SODIUM SUCCINATE
     Dosage: UNK
     Route: 042
  9. THIAMYLAL SODIUM [Concomitant]
     Active Substance: THIAMYLAL SODIUM
     Dosage: UNK
     Dates: start: 20140409, end: 20140413
  10. SOLU-MEDROL [Suspect]
     Active Substance: METHYLPREDNISOLONE SODIUM SUCCINATE
     Dosage: 400 MG, DAILY
     Route: 042
     Dates: start: 20140414, end: 20140416

REACTIONS (2)
  - Hyponatraemia [Recovered/Resolved]
  - Brain oedema [Recovered/Resolved]

NARRATIVE: CASE EVENT DATE: 20140414
